FAERS Safety Report 22141973 (Version 1)
Quarter: 2023Q1

REPORT INFORMATION
  Report Type: Report from Study
  Country: KR (occurrence: KR)
  Receive Date: 20230327
  Receipt Date: 20230327
  Transmission Date: 20230417
  Serious: Yes (Hospitalization, Other)
  Sender: FDA-Public Use
  Company Number: KR-GLAXOSMITHKLINE-KR2023GSK043418

PATIENT

DRUGS (16)
  1. FLUTICASONE FUROATE\UMECLIDINIUM BROMIDE\VILANTEROL TRIFENATATE [Suspect]
     Active Substance: FLUTICASONE FUROATE\UMECLIDINIUM BROMIDE\VILANTEROL TRIFENATATE
     Indication: Chronic obstructive pulmonary disease
     Dosage: UNK, QD
     Route: 055
     Dates: start: 20220630
  2. ELDO [Concomitant]
     Indication: Chronic obstructive pulmonary disease
     Dosage: UNK, BID
     Route: 048
     Dates: start: 20180502
  3. CODAEWON FORTE SYRUP [Concomitant]
     Indication: Chronic obstructive pulmonary disease
     Dosage: 1, BID
     Route: 048
     Dates: start: 20220901
  4. LIPITOR [Concomitant]
     Active Substance: ATORVASTATIN CALCIUM
     Indication: Intracranial aneurysm
     Dosage: 1, QD
     Route: 048
     Dates: start: 20220224
  5. ASPIRIN [Concomitant]
     Active Substance: ASPIRIN
     Indication: Intracranial aneurysm
     Dosage: 1, QD
     Route: 048
     Dates: start: 20211124
  6. PANTOPRAZOLE SODIUM [Concomitant]
     Active Substance: PANTOPRAZOLE SODIUM
     Indication: Gastrooesophageal reflux disease
     Dosage: 1, QD
     Route: 048
     Dates: start: 20211124
  7. PLAVIX [Concomitant]
     Active Substance: CLOPIDOGREL BISULFATE
     Indication: Intracranial aneurysm
     Dosage: 1, QD
     Route: 048
     Dates: start: 20211124
  8. MIRABEGRON [Concomitant]
     Active Substance: MIRABEGRON
     Indication: Benign prostatic hyperplasia
     Dosage: 1, QD
     Route: 048
     Dates: start: 20220922
  9. GASTER [Concomitant]
     Active Substance: FAMOTIDINE
     Indication: Gastrooesophageal reflux disease
     Dosage: 1, QD
     Route: 048
     Dates: start: 20220407
  10. DICAMAX 1000 [Concomitant]
     Indication: Vitamin supplementation
     Dosage: 1, QD
     Route: 048
     Dates: start: 20220407
  11. URO-VAXOM [Concomitant]
     Indication: Prostate cancer
     Dosage: 1, QD
     Route: 048
     Dates: start: 20220224
  12. HARNAL [Concomitant]
     Active Substance: TAMSULOSIN HYDROCHLORIDE
     Indication: Benign prostatic hyperplasia
     Dosage: 2, QD
     Route: 048
     Dates: start: 20220224
  13. AXID [Concomitant]
     Active Substance: NIZATIDINE
     Indication: Gastrooesophageal reflux disease
     Dosage: 1, BID
     Dates: start: 20220615
  14. KEPPRA [Concomitant]
     Active Substance: LEVETIRACETAM
     Indication: Idiopathic generalised epilepsy
     Dosage: 1, BID
     Route: 048
     Dates: start: 20220601
  15. NEBISTOL [Concomitant]
     Indication: Bundle branch block right
     Dosage: 0.5
     Route: 048
     Dates: start: 20190322
  16. SURFOLASE [Concomitant]
     Indication: Chronic obstructive pulmonary disease
     Dosage: 1, QD
     Route: 048
     Dates: start: 20120508

REACTIONS (1)
  - Cerebral infarction [Recovered/Resolved]

NARRATIVE: CASE EVENT DATE: 20230130
